FAERS Safety Report 9001489 (Version 2)
Quarter: 2013Q1

REPORT INFORMATION
  Report Type: Spontaneous
  Country: US (occurrence: US)
  Receive Date: 20130107
  Receipt Date: 20130117
  Transmission Date: 20140127
  Serious: Yes (Hospitalization, Other)
  Sender: FDA-Public Use
  Company Number: US-ALEXION-A201202523

PATIENT
  Age: 20 Year
  Sex: Female
  Weight: 123 kg

DRUGS (37)
  1. SOLIRIS 300MG [Suspect]
     Indication: HAEMOLYTIC URAEMIC SYNDROME
     Dosage: 1800 MG, UNK
     Route: 042
     Dates: start: 201212
  2. SOLIRIS 300MG [Suspect]
     Dosage: 300 MG, UNK
     Route: 042
     Dates: start: 201212
  3. PREDNISONE [Suspect]
     Dosage: 20 MG, QD
  4. PREDNISONE [Suspect]
     Dosage: 20 MG, BID
     Route: 048
     Dates: end: 20121231
  5. SEROQUEL [Concomitant]
     Indication: DEPRESSION
     Dosage: 400 MG, BID
     Route: 048
  6. SEROQUEL [Concomitant]
     Dosage: 300 MG, QD
     Route: 048
  7. LASIX [Concomitant]
     Dosage: 60 MG, QD
     Route: 048
  8. XANAX [Concomitant]
     Indication: ANXIETY
     Dosage: 1 MG, QD PRN AT BEDTIME
     Route: 048
  9. XANAX [Concomitant]
     Dosage: 0.5 MG, BID
     Route: 048
  10. PHENERGAN [Concomitant]
     Indication: NAUSEA
     Dosage: UNK, PRN
     Route: 061
  11. ZOFRAN [Concomitant]
     Indication: NAUSEA
     Dosage: 4 MG, PRN EVERY 8 HOURS
  12. HYDRALAZINE [Concomitant]
     Dosage: 75 MG, QID
     Route: 048
  13. MINOXIDIL [Concomitant]
     Dosage: 2.5 MG, BID
     Route: 048
  14. TOPROL XL [Concomitant]
     Dosage: 100 MG, QD
  15. TOPROL XL [Concomitant]
     Dosage: UNK
  16. NIFEDIPINE [Concomitant]
     Dosage: 60 MG, BID
  17. KENALOG [Concomitant]
     Dosage: UNK, QID
     Route: 061
  18. COLACE [Concomitant]
     Dosage: 100 MG, BID
  19. PEPCID [Concomitant]
     Dosage: 20 MG, BID
  20. MACROBID [Concomitant]
     Indication: URINARY TRACT INFECTION
  21. DIFLUCAN [Concomitant]
     Indication: CANDIDA INFECTION
     Dosage: 100 MG, QD
     Route: 048
     Dates: end: 20121230
  22. LOPRESSOR [Concomitant]
     Dosage: 50 MG, BID
     Route: 048
  23. LOPRESSOR [Concomitant]
     Dosage: 5 MG, PRN EVERY 6 HOURS
     Route: 030
  24. ALBUTEROL [Concomitant]
     Dosage: UNK
  25. PROCARDIA XL [Concomitant]
     Dosage: 60 MG, BID
     Route: 048
  26. CYTOTEC [Concomitant]
     Dosage: 200 QID
     Route: 067
  27. BENADRYL [Concomitant]
     Dosage: 50 MG, PRN EVERY 6 HOURS
     Route: 048
  28. ACETAMINOPHEN W/HYDROCODONE [Concomitant]
     Dosage: 10-325 MG EVERY 4 HOURS PRN
  29. NARCAN [Concomitant]
     Dosage: 0.1 MG UNK
     Route: 042
  30. TESSALON [Concomitant]
     Dosage: 100 MG, EVERY 4 HOURS PRN
     Route: 048
  31. ROBITUSSIN [Concomitant]
     Dosage: 200 MG, EVERY 4 HOURS PRN
     Route: 048
  32. TYLENOL [Concomitant]
     Dosage: 500 MG, EVERY 4 HOURS PRN
     Route: 048
  33. ZYVOX [Concomitant]
     Dosage: 600 MG, BID
     Route: 048
  34. MAGNESIUM OXIDE [Concomitant]
     Dosage: 400 MG, BID
     Route: 048
  35. FISH OIL [Concomitant]
     Dosage: 1 DF, TID
  36. BACTRIM [Concomitant]
     Dosage: 400-80 MG, BID
     Route: 048
  37. PRENATAL VITAMINS [Concomitant]
     Dosage: 1 DF, QD
     Route: 048

REACTIONS (12)
  - Pneumonia staphylococcal [Recovering/Resolving]
  - Medication error [Unknown]
  - Headache [Unknown]
  - Muscular weakness [Unknown]
  - Blood pressure increased [Unknown]
  - Heart rate increased [Unknown]
  - Local swelling [Unknown]
  - Joint swelling [Unknown]
  - Diarrhoea [Unknown]
  - Anxiety [Unknown]
  - Cushingoid [Unknown]
  - Dyspnoea [Unknown]
